FAERS Safety Report 8437281-3 (Version None)
Quarter: 2012Q2

REPORT INFORMATION
  Report Type: 
  Country: None (occurrence: None)
  Receive Date: 20120323
  Receipt Date: 20111019
  Transmission Date: 20120825
  Serious: Yes (Disabling, Other)
  Sender: FDA-Public Use
  Company Number: 163-21880-11053196

PATIENT
  Age: 68 Year
  Sex: Male

DRUGS (17)
  1. LORTAB [Concomitant]
  2. NEURONTIN [Concomitant]
  3. LYRICA [Concomitant]
  4. SIMVASTATIN [Concomitant]
  5. LASIX [Concomitant]
  6. LISINOPRIL [Concomitant]
  7. FOLIC ACID [Concomitant]
  8. TIAZAC [Concomitant]
  9. ACYCLOVIR [Concomitant]
  10. HYDROCHLOROTHIAZIDE [Concomitant]
  11. ASPIRIN [Concomitant]
  12. BACTRIM [Suspect]
     Indication: PNEUMOCYSTIS JIROVECI INFECTION
     Dosage: M, W, F, PO
     Route: 048
     Dates: start: 20110101, end: 20110301
  13. BACTRIM [Suspect]
     Indication: INFECTION PROPHYLAXIS
     Dosage: M, W, F, PO
     Route: 048
     Dates: start: 20110101, end: 20110301
  14. POTASSIUM ACETATE [Concomitant]
  15. DILTIAZEM HYDROCHOLORIDE [Concomitant]
  16. REVLIMID [Suspect]
     Indication: MULTIPLE MYELOMA
     Dosage: 10 MG, QD X21 DAYS, 1 WEEK OFF Q 28 DAYS, PO
     Route: 048
     Dates: start: 20110117, end: 20110601
  17. ZESTRIL [Concomitant]

REACTIONS (2)
  - PLATELET COUNT DECREASED [None]
  - RASH PRURITIC [None]
